FAERS Safety Report 10606806 (Version 1)
Quarter: 2014Q4

REPORT INFORMATION
  Report Type: Spontaneous
  Country: US (occurrence: None)
  Receive Date: 20141124
  Receipt Date: 20141124
  Transmission Date: 20150529
  Serious: Yes (Hospitalization)
  Sender: FDA-Public Use
  Company Number: None

PATIENT
  Age: 60 Year
  Sex: Male
  Weight: 118 kg

DRUGS (12)
  1. IPRATROPIUM [Concomitant]
     Active Substance: IPRATROPIUM
  2. TYLENOL [Concomitant]
     Active Substance: ACETAMINOPHEN
  3. GAS-X [Concomitant]
     Active Substance: DIMETHICONE
  4. AMILORIDE [Suspect]
     Active Substance: AMILORIDE
     Indication: HYPOMAGNESAEMIA
     Dosage: CHRONIC
     Route: 048
  5. VITAMIN D [Concomitant]
     Active Substance: CHOLECALCIFEROL
  6. MAG OX [Concomitant]
     Active Substance: MAGNESIUM OXIDE
  7. NORVASC [Concomitant]
     Active Substance: AMLODIPINE BESYLATE
  8. ALLOPURINOL. [Concomitant]
     Active Substance: ALLOPURINOL
  9. LISINOPRIL. [Suspect]
     Active Substance: LISINOPRIL
     Indication: HYPERTENSION
     Dosage: CHRONIC
     Route: 048
  10. SIMVASTAT [Concomitant]
  11. MECLIZINE [Concomitant]
     Active Substance: MECLIZINE\MECLIZINE HYDROCHLORIDE
  12. COLCRYS [Concomitant]
     Active Substance: COLCHICINE

REACTIONS (5)
  - Hyperkalaemia [None]
  - Acute kidney injury [None]
  - Malaise [None]
  - Nausea [None]
  - Diarrhoea [None]

NARRATIVE: CASE EVENT DATE: 20140608
